FAERS Safety Report 5194946-7 (Version None)
Quarter: 2006Q4

REPORT INFORMATION
  Report Type: 
  Country: None (occurrence: None)
  Receive Date: 20061229
  Receipt Date: 20061102
  Transmission Date: 20070319
  Serious: No
  Sender: FDA-Public Use
  Company Number: US-BRISTOL-MYERS SQUIBB COMPANY-13564315

PATIENT
  Age: 48 Year
  Sex: Female
  Weight: 116 kg

DRUGS (5)
  1. SPRYCEL [Suspect]
     Indication: CHRONIC MYELOID LEUKAEMIA
  2. TOPROL-XL [Concomitant]
  3. LUNESTA [Concomitant]
  4. PROCARDIA [Concomitant]
  5. PREMARIN [Concomitant]

REACTIONS (2)
  - ALOPECIA [None]
  - HOT FLUSH [None]
